FAERS Safety Report 7720765-0 (Version None)
Quarter: 2011Q3

REPORT INFORMATION
  Report Type: 
  Country: None (occurrence: None)
  Receive Date: 20110831
  Receipt Date: 20110825
  Transmission Date: 20111222
  Serious: Yes (Death, Other)
  Sender: FDA-Public Use
  Company Number: IN-ASTELLAS-2011JP005890

PATIENT
  Age: 36 Year
  Sex: Male

DRUGS (5)
  1. STEROIDS [Suspect]
     Route: 048
  2. ANTI-THYMOCYTE GLOBULIN NOS [Concomitant]
     Indication: TRANSPLANT REJECTION
     Route: 065
  3. TACROLIMUS [Suspect]
     Dosage: UNK
     Route: 048
  4. MYCOPHENOLATE MOFETIL [Suspect]
     Route: 048
  5. AMPHOTERICIN B [Concomitant]
     Indication: ASPERGILLOSIS
     Dosage: UNK
     Route: 065

REACTIONS (3)
  - ACINETOBACTER TEST POSITIVE [None]
  - MYCOTIC ANEURYSM [None]
  - SEPTIC SHOCK [None]
